FAERS Safety Report 9265514 (Version 1)
Quarter: 2013Q2

REPORT INFORMATION
  Report Type: Spontaneous
  Country: US (occurrence: US)
  Receive Date: 20130501
  Receipt Date: 20130501
  Transmission Date: 20140414
  Serious: Yes (Hospitalization, Other)
  Sender: FDA-Public Use
  Company Number: US-BAYER-2013-052131

PATIENT
  Age: 28 Year
  Sex: Female
  Weight: 97 kg

DRUGS (19)
  1. YASMIN [Suspect]
     Indication: MENORRHAGIA
  2. LOPID [Concomitant]
     Indication: HYPERCHOLESTEROLAEMIA
     Dosage: 600 MG, BID
  3. TOPAMAX [Concomitant]
     Indication: MIGRAINE
     Dosage: 20 OR 50 MG, BID
  4. LONOX [Concomitant]
     Dosage: 2.5-0.025 MG, QID
  5. PHENERGAN [Concomitant]
     Indication: NAUSEA
     Dosage: 25 MG, EVERY 4 TO 6 HOURS AS NEEDED
  6. PHENERGAN [Concomitant]
     Indication: NAUSEA
  7. VICODIN [Concomitant]
     Indication: PAIN
     Dosage: 5/500 MG, 1 TO 2 EVERY 4 HOURS AS NEEDED
  8. IMITREX [Concomitant]
     Indication: MIGRAINE
     Dosage: 6 MG / 0.5 ML, ONE TIME
  9. REGLAN [Concomitant]
     Dosage: 10 MG THREE OR FOUR TIMES DAILY, WITH MEALS AND AT BEDTIME
     Dates: start: 20050916
  10. ZOFRAN [Concomitant]
     Dosage: 4 MG, TID AS NEEDED
     Dates: start: 20050916
  11. COMPAZINE [Concomitant]
     Dosage: 10 MG, TID AS NEEDED
     Route: 048
  12. COMPAZINE [Concomitant]
     Dosage: 25 MG, BID AS NEEDED
     Route: 054
     Dates: end: 20050916
  13. LEVAQUIN [Concomitant]
     Dosage: 500 MG, DAILY
  14. QUESTRAN [Concomitant]
     Indication: DIARRHOEA
     Dosage: ONE TO THREE PACKS PER DAY
     Dates: start: 20051013
  15. PEPCID [Concomitant]
     Indication: GASTRITIS
  16. FIORICET [Concomitant]
     Indication: HEADACHE
     Dosage: 1 OR 2 FOUR TIMES DAILY AS NEEDED
     Dates: end: 20051022
  17. AUGMENTIN [Concomitant]
     Dosage: 875 MG, BID
  18. HYCODAN [HYDROCODONE BITARTRATE] [Concomitant]
     Dosage: 1 TEASPOONFUL EVERY 4 TO 6 HOURS AS NEEDED
  19. PREVACID [Concomitant]
     Indication: GASTRITIS
     Dosage: 30 MG, BID BEFORE EATING

REACTIONS (2)
  - Pulmonary embolism [None]
  - Biliary dyskinesia [None]
